FAERS Safety Report 9727142 (Version 2)
Quarter: 2013Q4

REPORT INFORMATION
  Report Type: Spontaneous
  Country: GB (occurrence: GB)
  Receive Date: 20131203
  Receipt Date: 20131203
  Transmission Date: 20140711
  Serious: Yes (Other)
  Sender: FDA-Public Use
  Company Number: PHFR2013GB005550

PATIENT
  Sex: Male

DRUGS (4)
  1. CLOZARIL [Suspect]
     Indication: SCHIZOPHRENIA
     Dosage: UNK
     Route: 048
     Dates: start: 20130315
  2. CLOZARIL [Suspect]
     Dosage: UNK
     Route: 048
  3. CLOZARIL [Suspect]
     Dosage: 400 MG, UNK
     Route: 048
  4. VALPROATE [Concomitant]
     Dosage: UNK

REACTIONS (1)
  - Epilepsy [Recovered/Resolved]
